FAERS Safety Report 9745390 (Version 1)
Quarter: 2013Q4

REPORT INFORMATION
  Report Type: Report from Study
  Country: BR (occurrence: BR)
  Receive Date: 20131211
  Receipt Date: 20131211
  Transmission Date: 20140711
  Serious: Yes (Hospitalization)
  Sender: FDA-Public Use
  Company Number: PHHY2013BR143824

PATIENT
  Age: 48 Year
  Sex: Female

DRUGS (2)
  1. FTY 720 [Suspect]
     Indication: MULTIPLE SCLEROSIS
     Dosage: 0.5 MG, QD
     Route: 048
     Dates: start: 20121113, end: 20131204
  2. ENOXAPARIN [Concomitant]
     Dosage: 20 MG, UNK
     Dates: start: 20131205

REACTIONS (2)
  - Chest discomfort [Recovered/Resolved]
  - Somnolence [Recovered/Resolved]
